FAERS Safety Report 14950525 (Version 1)
Quarter: 2018Q2

REPORT INFORMATION
  Report Type: Spontaneous
  Country: US (occurrence: US)
  Receive Date: 20180530
  Receipt Date: 20180530
  Transmission Date: 20180711
  Serious: Yes (Other)
  Sender: FDA-Public Use
  Company Number: US-009507513-1805USA010037

PATIENT
  Age: 30 Year
  Sex: Female

DRUGS (1)
  1. NEXPLANON [Suspect]
     Active Substance: ETONOGESTREL
     Indication: CONTRACEPTION
     Dosage: 68 MG, ONCE FOR 3 YEAR DOSE
     Route: 059
     Dates: start: 20151019, end: 20160101

REACTIONS (2)
  - Night sweats [Unknown]
  - Alopecia [Unknown]

NARRATIVE: CASE EVENT DATE: 20160101
